FAERS Safety Report 20155065 (Version 2)
Quarter: 2021Q4

REPORT INFORMATION
  Report Type: Spontaneous
  Country: JP (occurrence: JP)
  Receive Date: 20211207
  Receipt Date: 20211213
  Transmission Date: 20220303
  Serious: Yes (Hospitalization, Other)
  Sender: FDA-Public Use
  Company Number: JP-ASTELLAS-2021JP023389

PATIENT
  Age: 8 Decade
  Sex: Female

DRUGS (2)
  1. TACROLIMUS [Suspect]
     Active Substance: TACROLIMUS
     Indication: Kidney transplant rejection
     Dosage: UNK UNK, UNKNOWN FREQ.
     Route: 048
  2. DENOSUMAB [Suspect]
     Active Substance: DENOSUMAB
     Indication: Product used for unknown indication
     Dosage: 60 MG/DAY, UNKNOWN FREQ.
     Route: 058

REACTIONS (1)
  - Femur fracture [Recovered/Resolved]
